FAERS Safety Report 5782228-1 (Version None)
Quarter: 2008Q2

REPORT INFORMATION
  Report Type: 
  Country: None (occurrence: None)
  Receive Date: 20080623
  Receipt Date: 20080609
  Transmission Date: 20081010
  Serious: Yes (Disabling)
  Sender: FDA-Public Use
  Company Number: PHHY2008GB10619

PATIENT
  Age: 64 Year
  Sex: Female

DRUGS (2)
  1. ZOLEDRONIC ACID [Suspect]
     Indication: MULTIPLE MYELOMA
     Dosage: 4 MG
     Route: 042
     Dates: start: 20050501, end: 20071001
  2. ACETAMINOPHEN [Concomitant]
     Indication: BACK PAIN
     Dosage: 1 G PRN

REACTIONS (1)
  - OSTEONECROSIS [None]
